FAERS Safety Report 5291512-X (Version None)
Quarter: 2007Q2

REPORT INFORMATION
  Report Type: 
  Country: None (occurrence: None)
  Receive Date: 20070403
  Receipt Date: 20070320
  Transmission Date: 20071010
  Serious: Yes (Other)
  Sender: FDA-Public Use
  Company Number: US019665

PATIENT
  Age: 57 Year
  Sex: Male

DRUGS (2)
  1. PROVIGIL [Suspect]
     Indication: SLEEP APNOEA SYNDROME
     Dosage: 200 MG QD ORAL
     Route: 048
     Dates: start: 20050601
  2. PROVIGIL [Suspect]
     Indication: SLEEP DISORDER
     Dosage: 200 MG QD ORAL
     Route: 048
     Dates: start: 20050601

REACTIONS (1)
  - MYOCARDIAL INFARCTION [None]
